FAERS Safety Report 5390269-1 (Version None)
Quarter: 2007Q3

REPORT INFORMATION
  Report Type: 
  Country: None (occurrence: None)
  Receive Date: 20070718
  Receipt Date: 20070713
  Transmission Date: 20080115
  Serious: Yes (Hospitalization)
  Sender: FDA-Public Use
  Company Number: JP-BRACCO-BRO-011853

PATIENT
  Age: 71 Year
  Sex: Female

DRUGS (3)
  1. IOPAMIRON [Suspect]
     Indication: THERAPEUTIC EMBOLISATION
     Dosage: TOTAL DOSE
     Route: 013
  2. IOPAMIRON [Suspect]
     Dosage: TOTAL DOSE
     Route: 013
  3. IOPAMIRON [Suspect]
     Indication: ANGIOGRAM CEREBRAL
     Dosage: TOTAL DOSE
     Route: 013

REACTIONS (4)
  - CARDIOVASCULAR DISORDER [None]
  - COMPUTERISED TOMOGRAM ABNORMAL [None]
  - EXTRAVASATION [None]
  - HEMIPLEGIA [None]
